FAERS Safety Report 4883769-1 (Version None)
Quarter: 2006Q1

REPORT INFORMATION
  Report Type: 
  Country: None (occurrence: None)
  Receive Date: 20060113
  Receipt Date: 20051229
  Transmission Date: 20060701
  Serious: Yes (Other)
  Sender: FDA-Public Use
  Company Number: US200601000128

PATIENT
  Age: 85 Year
  Sex: Female

DRUGS (10)
  1. FORTEO [Suspect]
     Dates: start: 20041201
  2. FORTEO [Concomitant]
  3. ACTOS           /USA/ (PIOGLITAZONE HYDROCHLORIDE) [Concomitant]
  4. TRAMADOL (TRAMADOL) PILL (EXCEPT TABLETS) [Concomitant]
  5. DURAGESIC-100 [Concomitant]
  6. CALTRATE PLUS (CALCIUM, COLECALCIFEROL, COPPER, MAGNESIUM, MANGANESE, [Concomitant]
  7. ZELNORM /USA/ (TEGASEROD) [Concomitant]
  8. PREVACID [Concomitant]
  9. FOSAMAX                /ITA/ (ALENDRONATE SODIUM) [Concomitant]
  10. CELEBREX                     /UNK/ (CELECOXIB) [Concomitant]

REACTIONS (5)
  - ABDOMINAL PAIN UPPER [None]
  - BACK PAIN [None]
  - FUNGAL INFECTION [None]
  - HEPATOMEGALY [None]
  - PHARMACEUTICAL PRODUCT COMPLAINT [None]
